FAERS Safety Report 11170418 (Version 2)
Quarter: 2015Q2

REPORT INFORMATION
  Report Type: Spontaneous
  Country: US (occurrence: US)
  Receive Date: 20150608
  Receipt Date: 20150616
  Transmission Date: 20150821
  Serious: Yes (Hospitalization)
  Sender: FDA-Public Use
  Company Number: US-LPDUSPRD-20150383

PATIENT
  Age: 60 Year
  Sex: Female

DRUGS (3)
  1. VASOPRESSIN INJECTION, USP (0410-10) [Suspect]
     Active Substance: VASOPRESSIN
     Dosage: DOSE NOT PROVIDED
     Route: 065
  2. NOREPHINEPHRINE [Suspect]
     Active Substance: NOREPINEPHRINE\NOREPINEPHRINE BITARTRATE
     Dosage: DOSE NOT PROVIDED
     Route: 065
  3. EPINEPHRINE INJECTION, USP (1071-25) [Suspect]
     Active Substance: EPINEPHRINE
     Dosage: DOSE NOT PROVIDED
     Route: 065

REACTIONS (6)
  - Extravasation [Unknown]
  - Skin graft [None]
  - Skin necrosis [Unknown]
  - Infusion site ischaemia [None]
  - Infusion site extravasation [None]
  - Infusion site necrosis [None]
